FAERS Safety Report 24664727 (Version 1)
Quarter: 2024Q4

REPORT INFORMATION
  Report Type: Spontaneous
  Country: US (occurrence: None)
  Receive Date: 20241125
  Receipt Date: 20241125
  Transmission Date: 20250115
  Serious: Yes (Disabling)
  Sender: Public
  Company Number: None

PATIENT
  Age: 35 Year
  Sex: Female
  Weight: 55.35 kg

DRUGS (2)
  1. PROHANCE [Suspect]
     Active Substance: GADOTERIDOL
     Indication: Magnetic resonance imaging
     Dosage: OTHER QUANTITY : 3353 INJECTION(S);?OTHER FREQUENCY : ONE TIME ADMIN;?
     Route: 042
     Dates: start: 20241008, end: 20241008
  2. LISINOPRIL [Concomitant]
     Active Substance: LISINOPRIL

REACTIONS (12)
  - Headache [None]
  - Urticaria [None]
  - Dysgeusia [None]
  - Bone pain [None]
  - Arthralgia [None]
  - Tremor [None]
  - Gingival bleeding [None]
  - Chest pain [None]
  - Feeling jittery [None]
  - Depression [None]
  - Anxiety [None]
  - Tinnitus [None]

NARRATIVE: CASE EVENT DATE: 20241008
